FAERS Safety Report 25124411 (Version 1)
Quarter: 2025Q1

REPORT INFORMATION
  Report Type: Spontaneous
  Country: EU (occurrence: EU)
  Receive Date: 20250326
  Receipt Date: 20250326
  Transmission Date: 20250409
  Serious: Yes (Death)
  Sender: ETHYPHARM
  Company Number: None

PATIENT

DRUGS (2)
  1. BUPRENORPHINE HYDROCHLORIDE [Suspect]
     Active Substance: BUPRENORPHINE HYDROCHLORIDE
     Dates: end: 20230719
  2. CANNABIS SATIVA SUBSP. INDICA TOP [Suspect]
     Active Substance: CANNABIS SATIVA SUBSP. INDICA TOP
     Dates: end: 20230719

REACTIONS (3)
  - Accident at work [Fatal]
  - Substance use disorder [Fatal]
  - Drug use disorder [Fatal]

NARRATIVE: CASE EVENT DATE: 20230719
